FAERS Safety Report 5846530-7 (Version None)
Quarter: 2008Q3

REPORT INFORMATION
  Report Type: 
  Country: None (occurrence: None)
  Receive Date: 20080815
  Receipt Date: 20080805
  Transmission Date: 20090109
  Serious: Yes (Other)
  Sender: FDA-Public Use
  Company Number: GB-JNJFOC-20080802344

PATIENT
  Age: 4 Year
  Sex: Female

DRUGS (2)
  1. ACETAMINOPHEN [Suspect]
     Route: 048
  2. ACETAMINOPHEN [Suspect]
     Indication: DRUG USE FOR UNKNOWN INDICATION
     Dosage: ALLEGED MAXIMUM DOSE 2.8GDURATION OF TREATMENT: 17 HOURS
     Route: 048

REACTIONS (2)
  - LIVER INJURY [None]
  - OVERDOSE [None]
